FAERS Safety Report 19470756 (Version 2)
Quarter: 2021Q3

REPORT INFORMATION
  Report Type: Report from Study
  Country: IN (occurrence: IN)
  Receive Date: 20210629
  Receipt Date: 20210922
  Transmission Date: 20211014
  Serious: Yes (Other)
  Sender: FDA-Public Use
  Company Number: NVSC2020IN319415

PATIENT
  Age: 71 Year
  Sex: Male

DRUGS (2)
  1. VYMADA [Suspect]
     Active Substance: SACUBITRIL\VALSARTAN
     Indication: CARDIAC FAILURE
     Dosage: 0.5 DF, BID, (200 MG)
     Route: 048
  2. VYMADA [Suspect]
     Active Substance: SACUBITRIL\VALSARTAN
     Indication: CARDIAC FAILURE CHRONIC
     Dosage: 0.5 DF, BID (100 MG)
     Route: 048
     Dates: start: 20200928

REACTIONS (7)
  - Oedema peripheral [Not Recovered/Not Resolved]
  - Cough [Unknown]
  - Off label use [Unknown]
  - Arthralgia [Recovering/Resolving]
  - Dyspnoea [Recovered/Resolved]
  - Cataract [Recovered/Resolved]
  - Wrong technique in product usage process [Unknown]

NARRATIVE: CASE EVENT DATE: 20200928
